FAERS Safety Report 9783207 (Version 2)
Quarter: 2014Q1

REPORT INFORMATION
  Report Type: Spontaneous
  Country: FR (occurrence: FR)
  Receive Date: 20131226
  Receipt Date: 20140109
  Transmission Date: 20141002
  Serious: Yes (Death, Other)
  Sender: FDA-Public Use
  Company Number: FR-TEVA-452041ISR

PATIENT
  Age: 48 Year
  Sex: Male

DRUGS (1)
  1. TRAMADOL [Suspect]
     Indication: OVERDOSE
     Dosage: MASSIVE DOSE
     Route: 048

REACTIONS (12)
  - Overdose [Fatal]
  - Suicidal ideation [Fatal]
  - Altered state of consciousness [Unknown]
  - Coma [Unknown]
  - Convulsion [Unknown]
  - Confusional state [Unknown]
  - Somnolence [Unknown]
  - Dizziness [Unknown]
  - Hallucination [Unknown]
  - Nausea [Unknown]
  - Vomiting [Unknown]
  - Constipation [Unknown]
